FAERS Safety Report 9711845 (Version 1)
Quarter: 2013Q4

REPORT INFORMATION
  Report Type: Spontaneous
  Country: US (occurrence: US)
  Receive Date: 20131126
  Receipt Date: 20131126
  Transmission Date: 20140711
  Serious: No
  Sender: FDA-Public Use
  Company Number: US-BRISTOL-MYERS SQUIBB COMPANY-19119254

PATIENT
  Age: 62 Year
  Sex: Female
  Weight: 78 kg

DRUGS (6)
  1. BYDUREON [Suspect]
     Indication: TYPE 2 DIABETES MELLITUS
     Route: 058
     Dates: start: 201301
  2. METFORMIN [Concomitant]
  3. TRICOR [Concomitant]
  4. LOPERAMIDE [Concomitant]
  5. SIMVASTATIN [Concomitant]
  6. ZOCOR [Concomitant]
     Dosage: 20MG IN EVENING

REACTIONS (1)
  - Injection site pain [Unknown]
